FAERS Safety Report 4675747-2 (Version None)
Quarter: 2005Q2

REPORT INFORMATION
  Report Type: 
  Country: None (occurrence: None)
  Receive Date: 20050527
  Receipt Date: 20050318
  Transmission Date: 20051028
  Serious: Yes (Death)
  Sender: FDA-Public Use
  Company Number: US-BRISTOL-MYERS SQUIBB COMPANY-12905691

PATIENT
  Age: 56 Year
  Sex: Male

DRUGS (4)
  1. ERBITUX [Suspect]
     Indication: COLORECTAL CANCER METASTATIC
     Dosage: 800 MG WAS TO BE ADMIN./EVENT OCCURRED WITHIN 10 MIN/ACTUAL DOSE ADMINISTERED NOT AVAILABLE.
     Route: 042
     Dates: start: 20050208, end: 20050208
  2. ATIVAN [Concomitant]
     Indication: PREMEDICATION
     Route: 042
     Dates: start: 20050208, end: 20050208
  3. DIPHENHYDRAMINE HCL [Concomitant]
     Indication: PREMEDICATION
     Route: 042
     Dates: start: 20050208, end: 20050208
  4. TYLENOL (CAPLET) [Concomitant]
     Indication: PREMEDICATION
     Route: 048
     Dates: start: 20050208, end: 20050208

REACTIONS (1)
  - HYPERSENSITIVITY [None]
